FAERS Safety Report 8119735-2 (Version None)
Quarter: 2012Q1

REPORT INFORMATION
  Report Type: 
  Country: None (occurrence: None)
  Receive Date: 20120207
  Receipt Date: 20120203
  Transmission Date: 20120608
  Serious: Yes (Death)
  Sender: FDA-Public Use
  Company Number: KE-ABBOTT-12P-089-0901082-00

PATIENT
  Age: 51 Year
  Sex: Male

DRUGS (3)
  1. SEPTRA [Concomitant]
     Indication: PRODUCT USED FOR UNKNOWN INDICATION
     Dates: start: 20110328, end: 20120104
  2. LOPINAVIR/RITONAVIR [Suspect]
     Indication: HIV INFECTION
     Route: 048
     Dates: start: 20110328, end: 20120104
  3. RALTEGRAVIR [Concomitant]
     Indication: HIV INFECTION
     Dates: start: 20110328, end: 20120104

REACTIONS (2)
  - HYPOVOLAEMIC SHOCK [None]
  - HYPERKALAEMIA [None]
